FAERS Safety Report 7305307-6 (Version None)
Quarter: 2011Q1

REPORT INFORMATION
  Report Type: 
  Country: None (occurrence: None)
  Receive Date: 20110222
  Receipt Date: 20110126
  Transmission Date: 20110831
  Serious: No
  Sender: FDA-Public Use
  Company Number: US-B.I. PHARMACEUTICALS,INC./RIDGEFIELD-2011-BP-02642BP

PATIENT
  Sex: Female

DRUGS (9)
  1. MULTAQ [Concomitant]
     Indication: ATRIAL FIBRILLATION
  2. SIMVASTATIN [Concomitant]
     Indication: ATRIAL FIBRILLATION
  3. DIOVAN [Concomitant]
     Indication: ATRIAL FIBRILLATION
  4. METOPROLOL [Concomitant]
     Indication: ATRIAL FIBRILLATION
  5. PRADAXA [Suspect]
     Indication: ATRIAL FIBRILLATION
     Dosage: 300 MG
     Route: 048
     Dates: start: 20110106
  6. MECLIZINE [Concomitant]
     Indication: VERTIGO
  7. PANTOPRAZOLE [Concomitant]
     Indication: GASTROOESOPHAGEAL REFLUX DISEASE
  8. METFORMIN [Concomitant]
     Indication: GLUCOSE TOLERANCE IMPAIRED
  9. SYNTHROID [Concomitant]
     Indication: THYROID HORMONE REPLACEMENT THERAPY

REACTIONS (4)
  - RECTAL HAEMORRHAGE [None]
  - FLATULENCE [None]
  - GASTRIC PH DECREASED [None]
  - RASH [None]
